FAERS Safety Report 6097106-0 (Version None)
Quarter: 2009Q1

REPORT INFORMATION
  Report Type: 
  Country: None (occurrence: None)
  Receive Date: 20090225
  Receipt Date: 20090216
  Transmission Date: 20090719
  Serious: Yes (Other)
  Sender: FDA-Public Use
  Company Number: ADR0472009

PATIENT
  Age: 71 Year
  Sex: Male

DRUGS (4)
  1. LAMOTRIGINE [Suspect]
     Indication: EPILEPSY
     Dosage: 1 TABLET AT NIGHT ORAL
     Route: 048
     Dates: start: 20081211, end: 20090101
  2. ENALAPRIL [Concomitant]
  3. SPIRONOLACTONE [Concomitant]
  4. CITALOPRAM [Concomitant]

REACTIONS (3)
  - DRUG INEFFECTIVE [None]
  - EPILEPSY [None]
  - PRODUCT QUALITY ISSUE [None]
